FAERS Safety Report 23190762 (Version 3)
Quarter: 2023Q4

REPORT INFORMATION
  Report Type: Spontaneous
  Country: IT (occurrence: IT)
  Receive Date: 20231116
  Receipt Date: 20231208
  Transmission Date: 20240110
  Serious: Yes (Hospitalization, Disabling, Other)
  Sender: FDA-Public Use
  Company Number: IT-SANDOZ-SDZ2023IT050243

PATIENT
  Age: 3 Decade

DRUGS (21)
  1. OXYCODONE [Suspect]
     Active Substance: OXYCODONE
     Indication: Back pain
     Dosage: 10 MILLIGRAM, ONCE A DAY (5 MG, BID)
     Route: 065
     Dates: start: 202210, end: 2022
  2. OXYCODONE [Suspect]
     Active Substance: OXYCODONE
     Dosage: 20 MILLIGRAM, ONCE A DAY (DAY 1OF HOSPITALIZATION: OXYCODONE 10 MG + 10 MG)
     Route: 065
     Dates: start: 202302, end: 2023
  3. OXYCODONE [Suspect]
     Active Substance: OXYCODONE
     Dosage: 20 MILLIGRAM, ONCE A DAY ((DAY 2 OF HOSPITALIZATION (10 MG + 10 MG)
     Route: 065
     Dates: start: 2023, end: 2023
  4. OXYCODONE [Suspect]
     Active Substance: OXYCODONE
     Dosage: 15 MILLIGRAM, ONCE A DAY (UNK (DAY 3 OF HOSPITALIZATION (10 MG + 5 MG)
     Route: 065
     Dates: start: 2023, end: 2023
  5. OXYCODONE [Suspect]
     Active Substance: OXYCODONE
     Dosage: 10 MILLIGRAM, ONCE A DAY (DAY 4 OF HOSPITALIZATION (5 MG + 5 MG)
     Route: 065
     Dates: start: 2023, end: 2023
  6. OXYCODONE [Suspect]
     Active Substance: OXYCODONE
     Dosage: 5 MILLIGRAM ONCE A DAY (DAY 5 OF HOSPITALIZATION(5 MG))
     Route: 065
     Dates: start: 2023, end: 2023
  7. OXYCODONE [Suspect]
     Active Substance: OXYCODONE
     Dosage: 5 MILLIGRAM, ONCE A DAY (DAY 6 OF HOSPITALIZATION: OXYCODONE 5 MG+PREGABALIN 75 MG)
     Route: 065
     Dates: start: 2023, end: 2023
  8. OXYCODONE [Suspect]
     Active Substance: OXYCODONE
     Dosage: UNK (DAY 7 OF HOSPITALIZATION (STOP OXYCODONE, PREGABALIN 75 MG + 75 MG)
     Route: 065
     Dates: start: 2023
  9. OXYCODONE [Suspect]
     Active Substance: OXYCODONE
     Dosage: 40 MILLIGRAM, ONCE A DAY (20 MG, BID)
     Route: 065
     Dates: start: 2022
  10. OXYCODONE [Suspect]
     Active Substance: OXYCODONE
     Dosage: 5 MILLIGRAM (5 MG ? 2/DAY)
     Route: 065
     Dates: start: 202210
  11. OXYCODONE [Suspect]
     Active Substance: OXYCODONE
     Dosage: UNK (DOSE DECREASED)
     Route: 065
     Dates: start: 2023
  12. PREGABALIN [Concomitant]
     Active Substance: PREGABALIN
     Indication: Back pain
     Dosage: UNK (DAY 7 OF HOSPITALIZATION (STOP OXYCODONE, PREGABALIN 75 MG + 75 MG))
     Route: 065
  13. PREGABALIN [Concomitant]
     Active Substance: PREGABALIN
     Indication: Pain
     Dosage: 75 MILLIGRAM (DAY 8 OF HOSPITALIZATION (75 MG + 75 MG))
     Route: 065
  14. PREGABALIN [Concomitant]
     Active Substance: PREGABALIN
     Dosage: UNK (DAY 9 OF HOSPITALIZATION (75 MG + 150 MG))
     Route: 065
  15. PREGABALIN [Concomitant]
     Active Substance: PREGABALIN
     Dosage: UNK (DAY 10 OF HOSPITALIZATION (75 MG + 150 MG)K)
     Route: 065
  16. PREGABALIN [Concomitant]
     Active Substance: PREGABALIN
     Dosage: UNK (DAY 11 OF HOSPITALIZATION (150 MG + 150 MG))
     Route: 065
  17. PREGABALIN [Concomitant]
     Active Substance: PREGABALIN
     Dosage: UNK (DAY 12 OF HOSPITALIZATION (150 MG + 150 MG))
     Route: 065
  18. PREGABALIN [Concomitant]
     Active Substance: PREGABALIN
     Dosage: UNK (DAY 13 OF HOSPITALIZATION(150 MG + 150 MG))
     Route: 065
  19. PREGABALIN [Concomitant]
     Active Substance: PREGABALIN
     Dosage: UNK (DAY 14 OF HOSPITALIZATION (150 MG + 150 MG)K)
     Route: 065
  20. CHOLECALCIFEROL [Concomitant]
     Active Substance: CHOLECALCIFEROL
     Indication: Supplementation therapy
     Dosage: UNK, ONCE A DAY (OVER THE YEARS)
     Route: 065
  21. CHOLECALCIFEROL [Concomitant]
     Active Substance: CHOLECALCIFEROL
     Dosage: 8750 INTERNATIONAL UNIT, ONCE A DAY (DOSAGE AT ADMISSION)
     Route: 065

REACTIONS (9)
  - Hyperaesthesia [Recovered/Resolved]
  - Paradoxical pain [Recovered/Resolved]
  - Sitting disability [Recovered/Resolved]
  - Condition aggravated [Recovered/Resolved]
  - Allodynia [Recovered/Resolved]
  - Pain [Recovered/Resolved]
  - Loss of personal independence in daily activities [Recovered/Resolved]
  - Gait inability [Recovered/Resolved]
  - Drug ineffective [Unknown]

NARRATIVE: CASE EVENT DATE: 20220101
